FAERS Safety Report 21464585 (Version 4)
Quarter: 2023Q2

REPORT INFORMATION
  Report Type: Spontaneous
  Country: NZ (occurrence: NZ)
  Receive Date: 20221017
  Receipt Date: 20230421
  Transmission Date: 20230722
  Serious: Yes (Death, Other)
  Sender: FDA-Public Use
  Company Number: NZ-MYLANLABS-2022M1114980

PATIENT
  Age: 62 Year
  Sex: Male

DRUGS (33)
  1. CLOZARIL [Suspect]
     Active Substance: CLOZAPINE
     Indication: Schizophrenia
     Dosage: 450 MILLIGRAM, QD HS (NOCTE OR DAILY)
     Route: 048
     Dates: start: 20050809, end: 20220818
  2. CHOLECALCIFEROL [Concomitant]
     Active Substance: CHOLECALCIFEROL
     Indication: Vitamin D abnormal
     Dosage: 1.25 GRAM, MONTHLY
     Route: 065
  3. CHOLECALCIFEROL [Concomitant]
     Active Substance: CHOLECALCIFEROL
     Dosage: 1.25 MILLIGRAM, EVERY 28 DAYS, NEXT DOSE ON 09-MAY-2023, MONTHLY
     Route: 048
     Dates: start: 20220510
  4. FUROSEMIDE [Concomitant]
     Active Substance: FUROSEMIDE
     Dosage: 40 MILLIGRAM, QD START DATE: 09-MAR-2022, 40 MILLIGRAM, MANE (EVERYDAY)
     Route: 048
  5. ASPIRIN [Concomitant]
     Active Substance: ASPIRIN
     Indication: Transient ischaemic attack
     Dosage: 100 MILLIGRAM, QD MANE (EVERYDAY)
     Route: 048
     Dates: start: 20171027
  6. CITALOPRAM [Concomitant]
     Active Substance: CITALOPRAM HYDROBROMIDE
     Indication: Depression
     Dosage: 20 MILLIGRAM, QD MANE
     Route: 065
  7. CITALOPRAM [Concomitant]
     Active Substance: CITALOPRAM HYDROBROMIDE
     Dosage: START DAT: 28-MAR-2017, EVERDAY
     Route: 048
  8. METOPROLOL [Concomitant]
     Active Substance: METOPROLOL
     Indication: Hypertension
     Dosage: 47.5 MILLIGRAM, QD MANE
     Route: 065
  9. ACETAMINOPHEN [Concomitant]
     Active Substance: ACETAMINOPHEN
     Indication: Pain
     Dosage: 1 GRAM, BID
     Route: 065
  10. ACETAMINOPHEN [Concomitant]
     Active Substance: ACETAMINOPHEN
     Dosage: 1 GRAM, QD EVERYDAY (MANE)
     Route: 048
     Dates: start: 20220804
  11. ACETAMINOPHEN [Concomitant]
     Active Substance: ACETAMINOPHEN
     Dosage: 2 DOSAGE FORM, BID
     Route: 048
     Dates: start: 20220727
  12. THIAMINE [Concomitant]
     Active Substance: THIAMINE
     Dosage: 50 MILLIGRAM, QD MANE (EVERYDAY)
     Route: 048
     Dates: start: 20170328
  13. OXYBUTYNIN [Concomitant]
     Active Substance: OXYBUTYNIN
     Indication: Pollakiuria
     Dosage: START DATE: 28-MAR-2017, 2.5 MILLIGRAM, BID (MANE AND NOCTE, EVERYDAY)
     Route: 048
  14. PANTOPRAZOLE [Concomitant]
     Active Substance: PANTOPRAZOLE
     Indication: Dyspepsia
     Dosage: 40 MILLIGRAM, QD START DATE: 28-MAR-2017, 40 MILLIGRAM, NOCTE (EVERYDAY)
     Route: 048
  15. CODEINE [Concomitant]
     Active Substance: CODEINE
     Indication: Pain
     Dosage: UNK (15-30 MILLIGRAM, QID,PRN)
     Route: 065
  16. CODEINE [Concomitant]
     Active Substance: CODEINE
     Dosage: 15 MILLIGRAM, PRN
     Route: 048
  17. CODEINE [Concomitant]
     Active Substance: CODEINE
     Dosage: UNK1-2 TABLET, QID
     Route: 048
     Dates: start: 20220804
  18. VALACYCLOVIR HYDROCHLORIDE [Concomitant]
     Active Substance: VALACYCLOVIR HYDROCHLORIDE
     Indication: Infection
     Dosage: 1000 MILLIGRAM, TID (1 WEEK COURSE ONLY)
     Route: 065
  19. PSYLLIUM HUSK [Concomitant]
     Active Substance: PSYLLIUM HUSK
     Indication: Constipation
     Dosage: UNK (1 TEA SPOON IN THE MORNING)
     Route: 065
  20. PSYLLIUM HUSK [Concomitant]
     Active Substance: PSYLLIUM HUSK
     Dosage: 520 MILLIGRAM PER GRAM, QD (START DATE: 09-MAR-2022, 520 MILLIGRAM PER GRAM, EVERYDAY, MANE)
     Route: 048
  21. LACTULOSE [Concomitant]
     Active Substance: LACTULOSE
     Indication: Constipation
     Dosage: 15 MILLILITER, QD MANE (3.34G/5ML)
     Route: 065
  22. LACTULOSE [Concomitant]
     Active Substance: LACTULOSE
     Dosage: 15 MILLILITER, QD
     Route: 048
     Dates: start: 20170328
  23. CILAZAPRIL ANHYDROUS [Concomitant]
     Active Substance: CILAZAPRIL ANHYDROUS
     Dosage: 0.5 MILLIGRAM, QD MANE
     Route: 065
  24. ALENDRONATE [Concomitant]
     Active Substance: ALENDRONATE SODIUM
     Dosage: 70 MILLIGRAM, QW
     Route: 065
  25. POLYETHYLENE GLYCOL 3350\POTASSIUM CHLORIDE\SODIUM BICARBONATE\SODIUM [Concomitant]
     Active Substance: POLYETHYLENE GLYCOL 3350\POTASSIUM CHLORIDE\SODIUM BICARBONATE\SODIUM CHLORIDE
     Indication: Constipation
     Dosage: 178.5 MILLIGRAM, PRN
     Route: 048
  26. POLYETHYLENE GLYCOL 3350\POTASSIUM CHLORIDE\SODIUM BICARBONATE\SODIUM [Concomitant]
     Active Substance: POLYETHYLENE GLYCOL 3350\POTASSIUM CHLORIDE\SODIUM BICARBONATE\SODIUM CHLORIDE
     Dosage: (MACROGOL-3350 13.12G, SODIUM 2 SACHET CHLORIDE 350.7MG) START DATE: 09-MAR-2022, 2 SACHET NOCTE
     Route: 048
  27. BECLOMETHASONE DIPROPIONATE [Concomitant]
     Active Substance: BECLOMETHASONE DIPROPIONATE
     Indication: Seasonal allergy
     Dosage: 100 MICROGRAM, 100MCG/ACTUATION; NOSE; PRN (1-2, NOSE DAILY)
     Route: 065
  28. BECLOMETHASONE DIPROPIONATE [Concomitant]
     Active Substance: BECLOMETHASONE DIPROPIONATE
     Dosage: START DATE: 28-MAR-2017, 1-2 NOSE DAILY
     Route: 055
  29. ALBUTEROL SULFATE\IPRATROPIUM BROMIDE [Concomitant]
     Active Substance: ALBUTEROL SULFATE\IPRATROPIUM BROMIDE
     Indication: Asthma
     Dosage: START DATE: 27-MAR-2017 2 PUFFS, TID
     Route: 055
  30. CLOZAPINE [Concomitant]
     Active Substance: CLOZAPINE
     Indication: Schizophrenia
     Dosage: START DATE: 28-MAR-2017 EVERDAY
     Route: 048
  31. CLOZAPINE [Concomitant]
     Active Substance: CLOZAPINE
     Indication: Schizophrenia
     Dosage: START DATE: 28-MAR-2017, 25 MILLIGRAM, EVERYDAY
     Route: 048
  32. DOCUSATE SODIUM\SENNOSIDES A AND B [Concomitant]
     Active Substance: DOCUSATE SODIUM\SENNOSIDES A AND B
     Indication: Constipation
     Dosage: START DATE: 28-MAR-2017,2 DOSAGE FORM, BID
     Route: 048
  33. OXYGEN [Concomitant]
     Active Substance: OXYGEN
     Indication: Oxygen saturation decreased
     Dosage: START DATE: 01-MAR-2022,1-4 LITRE, UNLIMITED
     Route: 055

REACTIONS (6)
  - Respiratory arrest [Fatal]
  - Pneumonia [Unknown]
  - Cardiac failure congestive [Unknown]
  - Constipation [Unknown]
  - Salivary hypersecretion [Unknown]
  - Antipsychotic drug level increased [Unknown]

NARRATIVE: CASE EVENT DATE: 20170207
